FAERS Safety Report 8764253 (Version 3)
Quarter: 2012Q4

REPORT INFORMATION
  Report Type: 
  Country: BR (occurrence: BR)
  Receive Date: 20120831
  Receipt Date: 20121026
  Transmission Date: 20130627
  Serious: Yes (Other)
  Sender: FDA-Public Use
  Company Number: BR-SHIRE-ALL1-2012-04012

PATIENT
  Age: 59 Year
  Sex: Female

DRUGS (3)
  1. MEZAVANT [Suspect]
     Indication: PROCTOCOLITIS
     Dosage: 4 DF, 1x/day:qd
     Route: 048
     Dates: start: 20120718, end: 20120819
  2. PANTOPRAZOLE [Concomitant]
     Indication: PRODUCT USED FOR UNKNOWN INDICATION
     Dosage: 1 DF, 1x/day:qd
     Route: 065
     Dates: start: 2007
  3. LIVOLON [Concomitant]
     Indication: MENOPAUSE
     Dosage: 1.25 mg, 1x/day:qd
     Route: 065
     Dates: start: 2007

REACTIONS (12)
  - Dry skin [Recovered/Resolved]
  - Hair texture abnormal [Recovered/Resolved]
  - Insomnia [Recovered/Resolved]
  - Generalised erythema [Recovered/Resolved]
  - Body temperature increased [Recovered/Resolved]
  - Alopecia [Recovered/Resolved]
  - Off label use [Recovered/Resolved]
  - Chromaturia [Recovered/Resolved]
  - Vision blurred [Recovered/Resolved]
  - Eosinophilia [Recovered/Resolved]
  - Cataract subcapsular [Recovered/Resolved with Sequelae]
  - Blood pressure increased [Recovered/Resolved]
